FAERS Safety Report 17576929 (Version 2)
Quarter: 2020Q3

REPORT INFORMATION
  Report Type: Report from Study
  Country: US (occurrence: US)
  Receive Date: 20200324
  Receipt Date: 20200709
  Transmission Date: 20201102
  Serious: Yes (Other)
  Sender: FDA-Public Use
  Company Number: PHHY2016US099273

PATIENT
  Age: 47 Year
  Sex: Female

DRUGS (1)
  1. GILENYA [Suspect]
     Active Substance: FINGOLIMOD HYDROCHLORIDE
     Indication: MULTIPLE SCLEROSIS
     Dosage: QD
     Route: 048

REACTIONS (3)
  - Kidney infection [Recovered/Resolved]
  - Bacterial vaginosis [Recovered/Resolved]
  - Limb discomfort [Unknown]

NARRATIVE: CASE EVENT DATE: 20150701
